FAERS Safety Report 5683801-1 (Version None)
Quarter: 2008Q1

REPORT INFORMATION
  Report Type: 
  Country: None (occurrence: None)
  Receive Date: 20080326
  Receipt Date: 20080317
  Transmission Date: 20080703
  Serious: Yes (Other)
  Sender: FDA-Public Use
  Company Number: THQ2008A00527

PATIENT
  Age: 6 Decade
  Sex: Female

DRUGS (2)
  1. PIOGLITAZONE HCL [Suspect]
     Dosage: PER ORAL
     Dates: start: 20071201
  2. HUMALOG MIX 75/25 [Suspect]
     Dosage: PER ORAL
     Route: 048
     Dates: start: 20071201

REACTIONS (1)
  - HEPATIC INFECTION [None]
